FAERS Safety Report 21250388 (Version 3)
Quarter: 2022Q3

REPORT INFORMATION
  Report Type: Spontaneous
  Country: DE (occurrence: DE)
  Receive Date: 20220824
  Receipt Date: 20220926
  Transmission Date: 20221027
  Serious: Yes (Other)
  Sender: FDA-Public Use
  Company Number: DE-002147023-NVSC2022DE183858

PATIENT
  Sex: Female

DRUGS (5)
  1. VENLAFAXINE HCL [Suspect]
     Active Substance: VENLAFAXINE HYDROCHLORIDE
     Dosage: 2 DOSAGE FORM, QD (AT MORNING)
  2. TOLTERODINE TARTRATE [Suspect]
     Active Substance: TOLTERODINE TARTRATE
     Dosage: 1 DOSAGE FORM, QD (RETARD, SUSTAINED RELEASE)
  3. BISOPROLOL FUMARATE [Suspect]
     Active Substance: BISOPROLOL FUMARATE
     Dosage: 1.5 DOSAGE FORM, BID (1 AT MORNING, 0.5 AT NIGHT)
  4. RAMIPRIL [Suspect]
     Active Substance: RAMIPRIL
     Dosage: 1 DOSAGE FORM, QD (AT MORNING)
  5. MIRTAZAPINE [Suspect]
     Active Substance: MIRTAZAPINE
     Dosage: 7.5 MG, QD (AT NIGHT)

REACTIONS (4)
  - Pancytopenia [Unknown]
  - Anaemia macrocytic [Unknown]
  - Thrombocytopenia [Unknown]
  - Inappropriate schedule of product administration [Unknown]
